FAERS Safety Report 21682531 (Version 1)
Quarter: 2022Q4

REPORT INFORMATION
  Report Type: Spontaneous
  Country: US (occurrence: US)
  Receive Date: 20221205
  Receipt Date: 20221205
  Transmission Date: 20230113
  Serious: Yes (Other)
  Sender: FDA-Public Use
  Company Number: US-PFIZER INC-PV202200116041

PATIENT
  Age: 80 Year
  Sex: Female

DRUGS (3)
  1. XELJANZ XR [Suspect]
     Active Substance: TOFACITINIB CITRATE
     Indication: Rheumatoid arthritis
     Dosage: UNK
  2. XELJANZ XR [Suspect]
     Active Substance: TOFACITINIB CITRATE
     Indication: Osteoarthritis
  3. PLAVIX [Suspect]
     Active Substance: CLOPIDOGREL BISULFATE
     Dosage: UNK
     Dates: start: 2021

REACTIONS (9)
  - Vascular operation [Unknown]
  - Haemorrhage [Unknown]
  - Skin discolouration [Unknown]
  - Haematoma [Unknown]
  - Epistaxis [Recovered/Resolved]
  - Condition aggravated [Unknown]
  - Pain [Unknown]
  - Dizziness [Unknown]
  - Fear [Unknown]

NARRATIVE: CASE EVENT DATE: 20210101
